FAERS Safety Report 12559721 (Version 1)
Quarter: 2016Q3

REPORT INFORMATION
  Report Type: Spontaneous
  Country: US (occurrence: US)
  Receive Date: 20160715
  Receipt Date: 20160715
  Transmission Date: 20161109
  Serious: No
  Sender: FDA-Public Use
  Company Number: US-JNJFOC-20160615596

PATIENT
  Age: 68 Year
  Sex: Female
  Weight: 63.5 kg

DRUGS (2)
  1. PEPCID AC [Suspect]
     Active Substance: FAMOTIDINE
     Indication: FOOD POISONING
     Dosage: 3 OR 4 TIMES
     Route: 048
     Dates: start: 20160612
  2. PEPCID AC [Suspect]
     Active Substance: FAMOTIDINE
     Indication: DYSPEPSIA
     Dosage: 3 OR 4 TIMES
     Route: 048
     Dates: start: 20160612

REACTIONS (5)
  - Off label use [Unknown]
  - Therapeutic response unexpected [Unknown]
  - Expired product administered [Unknown]
  - Drug dispensing error [Unknown]
  - Product use issue [Unknown]

NARRATIVE: CASE EVENT DATE: 20160612
